FAERS Safety Report 25612698 (Version 1)
Quarter: 2025Q3

REPORT INFORMATION
  Report Type: Report from Study
  Country: EG (occurrence: EG)
  Receive Date: 20250728
  Receipt Date: 20250728
  Transmission Date: 20251021
  Serious: Yes (Disabling)
  Sender: ROCHE
  Company Number: EG-ROCHE-10000343191

PATIENT
  Age: 43 Year
  Sex: Male

DRUGS (5)
  1. OCREVUS [Suspect]
     Active Substance: OCRELIZUMAB
     Indication: Multiple sclerosis
     Route: 042
     Dates: start: 20220115
  2. PK-MERZ [Concomitant]
     Active Substance: AMANTADINE
  3. BETAHISTINE [Concomitant]
     Active Substance: BETAHISTINE
  4. BACLOFEN [Concomitant]
     Active Substance: BACLOFEN
  5. Dalfarosis [Concomitant]

REACTIONS (7)
  - Hypokinesia [Not Recovered/Not Resolved]
  - Nervousness [Not Recovered/Not Resolved]
  - Urinary incontinence [Not Recovered/Not Resolved]
  - Tooth erosion [Not Recovered/Not Resolved]
  - Confusional state [Not Recovered/Not Resolved]
  - Amnesia [Not Recovered/Not Resolved]
  - Drug ineffective [Unknown]
